FAERS Safety Report 7937158-3 (Version None)
Quarter: 2011Q4

REPORT INFORMATION
  Report Type: 
  Country: None (occurrence: None)
  Receive Date: 20111123
  Receipt Date: 20111116
  Transmission Date: 20120403
  Serious: Yes (Hospitalization)
  Sender: FDA-Public Use
  Company Number: US-GLAXOSMITHKLINE-A0768713A

PATIENT
  Age: 64 Year
  Sex: Male
  Weight: 135.5 kg

DRUGS (2)
  1. GLUCOPHAGE [Concomitant]
     Dates: start: 19990101
  2. AVANDIA [Suspect]
     Indication: TYPE 2 DIABETES MELLITUS
     Route: 065
     Dates: start: 20050314, end: 20070606

REACTIONS (4)
  - ARTERIOSCLEROSIS [None]
  - HYPERTENSION [None]
  - CORONARY ARTERY DISEASE [None]
  - MYOCARDIAL INFARCTION [None]
